FAERS Safety Report 10916472 (Version 2)
Quarter: 2015Q1

REPORT INFORMATION
  Report Type: Spontaneous
  Country: AU (occurrence: None)
  Receive Date: 20150311
  Receipt Date: 20150319
  Transmission Date: 20150721
  Serious: Yes (Hospitalization, Other)
  Sender: FDA-Public Use
  Company Number: KAD201503-000443

PATIENT
  Age: 62 Year
  Sex: Male
  Weight: 72 kg

DRUGS (9)
  1. RIBAVIRIN (RIBAVIRIN) [Suspect]
     Active Substance: RIBAVIRIN
     Indication: HEPATITIS C
     Dosage: 1200 MG, ORAL
     Dates: start: 20141217, end: 20141230
  2. SERTRALINE (SERTRALINE HYDROCHLORIDE) (SERTRALINE HYDROCHLORIDE) [Concomitant]
  3. SERETIDE (FLUTICASONE PROPIONATE, SALMETEROL XINAFOATE) (FLUTICASONE PROPIONATE, SALMETEROL XINAFOATE) [Concomitant]
  4. ABT-333 (DASABUVIR) [Suspect]
     Active Substance: DASABUVIR
     Indication: HEPATITIS C
     Dosage: 500 MG, ORAL
     Dates: start: 20141217, end: 20141230
  5. VERAPAMIL (VERAPAMIL HYDROCHLORIDE) (VERAPAMIL HYDROCHLORIDE) [Concomitant]
     Active Substance: VERAPAMIL HYDROCHLORIDE
  6. TELMISARTAN (TELMISARTAN) (TELMISARTAN) [Concomitant]
     Active Substance: TELMISARTAN
  7. PREDNISOLONE (PREDNISOLONE) (PREDNISOLONE) [Concomitant]
     Active Substance: PREDNISOLONE
  8. ABT-450/RITONAVIR/ABT-267 (OMBITASVIR, PARITAPREVIR, RITONAVIR) [Suspect]
     Active Substance: OMBITASVIR\PARITAPREVIR\RITONAVIR
     Indication: HEPATITIS C
     Route: 048
     Dates: start: 20141217, end: 20141230
  9. TIOTROPIUM (TIOTROPIUM) (TIOTROPIUM) [Concomitant]
     Active Substance: TIOTROPIUM

REACTIONS (12)
  - C-reactive protein increased [None]
  - Peripheral swelling [None]
  - Hyponatraemia [None]
  - Vision blurred [None]
  - Cataract [None]
  - Anaemia [None]
  - Lethargy [None]
  - Mouth ulceration [None]
  - Emphysema [None]
  - Malaise [None]
  - White blood cell count increased [None]
  - Dyspnoea [None]

NARRATIVE: CASE EVENT DATE: 20141217
